FAERS Safety Report 10159353 (Version 1)
Quarter: 2014Q2

REPORT INFORMATION
  Report Type: Report from Study
  Country: US (occurrence: US)
  Receive Date: 20140508
  Receipt Date: 20140508
  Transmission Date: 20141212
  Serious: Yes (Death)
  Sender: FDA-Public Use
  Company Number: US-ROCHE-1392069

PATIENT
  Age: 7 Year
  Sex: Male

DRUGS (7)
  1. ONDANSETRON [Concomitant]
  2. CEFTRIAXONE [Suspect]
     Indication: BACTERAEMIA
     Dosage: PER DOSE
     Route: 065
  3. FENRETINIDE [Interacting]
     Indication: NEUROBLASTOMA
     Dosage: ASSIGNED DOSE
     Route: 042
     Dates: start: 201002
  4. PARACETAMOL [Interacting]
     Indication: PYREXIA
     Route: 065
  5. PARACETAMOL [Interacting]
     Dosage: SECOND DOSE
     Route: 065
  6. IBUPROFEN [Suspect]
     Indication: PYREXIA
     Route: 065
  7. MONTELUKAST [Concomitant]

REACTIONS (2)
  - Acute hepatic failure [Fatal]
  - Drug interaction [Fatal]
